FAERS Safety Report 13544086 (Version 2)
Quarter: 2017Q2

REPORT INFORMATION
  Report Type: Spontaneous
  Country: US (occurrence: US)
  Receive Date: 20170515
  Receipt Date: 20170519
  Transmission Date: 20170830
  Serious: Yes (Other)
  Sender: FDA-Public Use
  Company Number: US-ABBVIE-17K-163-1973637-00

PATIENT
  Age: 32 Year
  Sex: Female
  Weight: 68.46 kg

DRUGS (2)
  1. HUMIRA [Suspect]
     Active Substance: ADALIMUMAB
     Indication: COLITIS ULCERATIVE
     Route: 058
     Dates: end: 2017
  2. HUMIRA [Suspect]
     Active Substance: ADALIMUMAB
     Indication: CROHN^S DISEASE
     Route: 058
     Dates: start: 2012, end: 201605

REACTIONS (3)
  - Lupus-like syndrome [Recovering/Resolving]
  - Cerebrovascular accident [Recovering/Resolving]
  - Lumbar puncture abnormal [Recovering/Resolving]

NARRATIVE: CASE EVENT DATE: 201702
